FAERS Safety Report 13040232 (Version 1)
Quarter: 2016Q4

REPORT INFORMATION
  Report Type: Spontaneous
  Country: IN (occurrence: IN)
  Receive Date: 20161219
  Receipt Date: 20161219
  Transmission Date: 20170207
  Serious: Yes (Death, Life-Threatening)
  Sender: FDA-Public Use
  Company Number: IN-BAYER-2016-232647

PATIENT
  Age: 64 Year
  Sex: Male

DRUGS (2)
  1. CLOPIDOGREL [Interacting]
     Active Substance: CLOPIDOGREL BISULFATE
     Dosage: 75 MG, QD
  2. ACETYLSALICYLIC ACID (} 100 MG) [Suspect]
     Active Substance: ASPIRIN
     Dosage: 150 MG, QD

REACTIONS (6)
  - Vessel puncture site haematoma [Fatal]
  - Labelled drug-drug interaction medication error [Fatal]
  - Drug administration error [Fatal]
  - Coagulopathy [Fatal]
  - Thrombocytopenia [Fatal]
  - Melaena [Fatal]
